FAERS Safety Report 6791317-4 (Version None)
Quarter: 2010Q2

REPORT INFORMATION
  Report Type: 
  Country: None (occurrence: None)
  Receive Date: 20100624
  Receipt Date: 20100618
  Transmission Date: 20101027
  Serious: Yes (Other)
  Sender: FDA-Public Use
  Company Number: CR-ROCHE-710513

PATIENT
  Sex: Female
  Weight: 65 kg

DRUGS (1)
  1. PEGASYS [Suspect]
     Indication: HEPATITIS B
     Route: 058
     Dates: start: 20100611, end: 20100618

REACTIONS (2)
  - BREAST CANCER [None]
  - RASH PUSTULAR [None]
